FAERS Safety Report 10655377 (Version 1)
Quarter: 2014Q4

REPORT INFORMATION
  Report Type: Spontaneous
  Country: US (occurrence: US)
  Receive Date: 20141216
  Receipt Date: 20141216
  Transmission Date: 20150529
  Serious: Yes (Other)
  Sender: FDA-Public Use
  Company Number: US-RECKITT BENCKISER PHARMACEUTICAL, INC-RB-74185-2014

PATIENT
  Age: 65 Year
  Sex: Female

DRUGS (1)
  1. SUBOXONE [Suspect]
     Active Substance: BUPRENORPHINE HYDROCHLORIDE\NALOXONE HYDROCHLORIDE
     Indication: DEPRESSION
     Dosage: CUT THE FILM IN TINY PIECES AND TAKES A SMALL PIECE DAILY
     Route: 060
     Dates: start: 2013

REACTIONS (4)
  - Wrong technique in drug usage process [Not Recovered/Not Resolved]
  - Suicidal ideation [Unknown]
  - Off label use [Not Recovered/Not Resolved]
  - Therapeutic response unexpected [Unknown]

NARRATIVE: CASE EVENT DATE: 2013
